FAERS Safety Report 6276310-2 (Version None)
Quarter: 2009Q3

REPORT INFORMATION
  Report Type: 
  Country: None (occurrence: None)
  Receive Date: 20090722
  Receipt Date: 20090716
  Transmission Date: 20100115
  Serious: Yes (Hospitalization)
  Sender: FDA-Public Use
  Company Number: FR-ROCHE-634501

PATIENT
  Sex: Female
  Weight: 58 kg

DRUGS (9)
  1. RIBAVIRIN [Suspect]
     Dosage: ROUTE, DOSE FORM: AS PER PROTOCOL.
     Route: 048
  2. RIBAVIRIN [Suspect]
     Dosage: DOSE REPORTED AS 1000MG/ DAY.
     Route: 048
     Dates: start: 20090306
  3. EPOETIN BETA [Suspect]
     Indication: ANAEMIA OF CHRONIC DISEASE
     Dosage: DOSE:30,000 ^UI^,FORM:30,000 ^UI^,DATE OF LAST DOSE PRIOR TO SAE: 14 MAY 2009
     Route: 058
     Dates: start: 20090430, end: 20090521
  4. EPOETIN BETA [Suspect]
     Dosage: THERAPY RESTARTED. DOSE: 30000 UI.
     Route: 058
     Dates: start: 20090529
  5. PEG-INTERFERON ALFA 2A [Concomitant]
     Dates: start: 20090306
  6. LEVOTHYROX [Suspect]
     Route: 065
     Dates: start: 19900101
  7. LEVOTHYROX [Suspect]
     Route: 065
  8. HYDROCORTISONE [Suspect]
     Route: 065
     Dates: start: 19900101, end: 20090515
  9. HYDROCORTISONE [Suspect]
     Route: 065
     Dates: start: 20090520

REACTIONS (2)
  - ADRENOCORTICAL INSUFFICIENCY ACUTE [None]
  - TOOTH ABSCESS [None]
